FAERS Safety Report 20954409 (Version 2)
Quarter: 2022Q2

REPORT INFORMATION
  Report Type: Report from Study
  Country: US (occurrence: None)
  Receive Date: 20220614
  Receipt Date: 20220615
  Transmission Date: 20220721
  Serious: No
  Sender: FDA-Public Use
  Company Number: US-MDD US Operations-MDD202103-000464

PATIENT
  Age: 73 Year
  Sex: Female

DRUGS (1)
  1. APOKYN [Suspect]
     Active Substance: APOMORPHINE HYDROCHLORIDE
     Indication: Parkinson^s disease
     Route: 058
     Dates: start: 201205

REACTIONS (5)
  - Illness [Unknown]
  - Malaise [Unknown]
  - Presyncope [Unknown]
  - Nausea [Unknown]
  - Vomiting [Unknown]
